FAERS Safety Report 10430961 (Version 1)
Quarter: 2014Q3

REPORT INFORMATION
  Report Type: Spontaneous
  Country: JP (occurrence: JP)
  Receive Date: 20140904
  Receipt Date: 20140904
  Transmission Date: 20150326
  Serious: Yes (Other)
  Sender: FDA-Public Use
  Company Number: PHHY2012JP135468

PATIENT
  Age: 74 Year
  Sex: Female

DRUGS (3)
  1. TASIGNA [Suspect]
     Active Substance: NILOTINIB
     Indication: CHRONIC MYELOID LEUKAEMIA
     Dosage: 600 MG, DAILY
  2. TASIGNA [Suspect]
     Active Substance: NILOTINIB
     Dosage: 400 MG, DAILY
  3. TASIGNA [Suspect]
     Active Substance: NILOTINIB
     Dosage: 400 MG, DAILY

REACTIONS (3)
  - Electrocardiogram QT prolonged [Unknown]
  - Gastrointestinal disorder [Unknown]
  - Blood potassium decreased [Unknown]
